FAERS Safety Report 12633479 (Version 1)
Quarter: 2016Q3

REPORT INFORMATION
  Report Type: Spontaneous
  Country: US (occurrence: US)
  Receive Date: 20160809
  Receipt Date: 20160809
  Transmission Date: 20161109
  Serious: Yes (Other)
  Sender: FDA-Public Use
  Company Number: US-TEVA-682535ACC

PATIENT
  Sex: Female

DRUGS (2)
  1. TAKE ACTION [Suspect]
     Active Substance: LEVONORGESTREL
     Indication: POST COITAL CONTRACEPTION
     Dates: start: 20160705, end: 20160705
  2. TAKE ACTION [Suspect]
     Active Substance: LEVONORGESTREL
     Dates: start: 20160719, end: 20160719

REACTIONS (6)
  - Nausea [Recovered/Resolved]
  - Pregnancy after post coital contraception [Unknown]
  - Menstruation irregular [Not Recovered/Not Resolved]
  - Menstruation delayed [Recovered/Resolved]
  - Vaginal haemorrhage [Recovered/Resolved]
  - Exposure during pregnancy [Unknown]

NARRATIVE: CASE EVENT DATE: 20160728
